FAERS Safety Report 24847306 (Version 1)
Quarter: 2025Q1

REPORT INFORMATION
  Report Type: Spontaneous
  Country: US (occurrence: US)
  Receive Date: 20250116
  Receipt Date: 20250116
  Transmission Date: 20250409
  Serious: No
  Sender: Steriscience PTE
  Company Number: US-STERISCIENCE B.V.-2024-ST-001726

PATIENT
  Age: 60 Year
  Sex: Male

DRUGS (7)
  1. MYCOPHENOLATE MOFETIL [Suspect]
     Active Substance: MYCOPHENOLATE MOFETIL
     Indication: Hidradenitis
     Route: 065
  2. HYDROXYCHLOROQUINE [Suspect]
     Active Substance: HYDROXYCHLOROQUINE
     Indication: Hidradenitis
     Route: 065
  3. AZATHIOPRINE [Suspect]
     Active Substance: AZATHIOPRINE
     Indication: Hidradenitis
     Route: 065
  4. DAPSONE [Suspect]
     Active Substance: DAPSONE
     Indication: Hidradenitis
     Route: 065
  5. POTASSIUM IODIDE [Suspect]
     Active Substance: POTASSIUM IODIDE
     Indication: Hidradenitis
     Route: 065
  6. ACITRETIN [Suspect]
     Active Substance: ACITRETIN
     Indication: Hidradenitis
     Route: 065
  7. CYCLOSPORINE [Suspect]
     Active Substance: CYCLOSPORINE
     Indication: Hidradenitis
     Route: 065

REACTIONS (1)
  - Drug ineffective for unapproved indication [Unknown]
